FAERS Safety Report 4888209-4 (Version None)
Quarter: 2006Q1

REPORT INFORMATION
  Report Type: 
  Country: None (occurrence: None)
  Receive Date: 20060119
  Receipt Date: 20060110
  Transmission Date: 20060701
  Serious: Yes (Other)
  Sender: FDA-Public Use
  Company Number: 2006006733

PATIENT
  Age: 62 Year
  Sex: Female
  Weight: 97.5234 kg

DRUGS (13)
  1. LYRICA [Suspect]
     Indication: NEUROPATHY
     Dosage: 50 MG (25 MG, 2 IN 1 D), ORAL
     Route: 048
     Dates: start: 20050901
  2. BOTOX (BOTULINUM TOXIN TYPE A) [Suspect]
     Indication: MUSCULOSKELETAL STIFFNESS
  3. PROVIGIL [Concomitant]
  4. AMARYL [Concomitant]
  5. VALIUM [Concomitant]
  6. DURAGESIC-100 [Concomitant]
  7. ZOLOFT [Concomitant]
  8. LORTAB [Concomitant]
  9. ALLEGRA-D 12 HOUR [Concomitant]
  10. NEXIUM [Concomitant]
  11. IMITREX [Concomitant]
  12. FLONASE [Concomitant]
  13. ULTRAM [Concomitant]

REACTIONS (7)
  - ASTHENIA [None]
  - CEREBROVASCULAR ACCIDENT [None]
  - DIABETIC COMPLICATION [None]
  - INSOMNIA [None]
  - PAIN [None]
  - VICTIM OF CRIME [None]
  - VISION BLURRED [None]
